FAERS Safety Report 5162380-1 (Version None)
Quarter: 2006Q4

REPORT INFORMATION
  Report Type: 
  Country: None (occurrence: None)
  Receive Date: 20061127
  Receipt Date: 20061127
  Transmission Date: 20070319
  Serious: No
  Sender: FDA-Public Use
  Company Number: None

PATIENT
  Sex: Male
  Weight: 81.6475 kg

DRUGS (3)
  1. LEXAPRO [Suspect]
     Indication: ANXIETY
     Dosage: 10MG
     Dates: start: 20040301, end: 20050301
  2. LEXAPRO [Suspect]
     Indication: DEPRESSION
     Dosage: 10MG
     Dates: start: 20040301, end: 20050301
  3. LEXAPRO [Concomitant]

REACTIONS (1)
  - SEXUAL DYSFUNCTION [None]
